FAERS Safety Report 9617127 (Version 1)
Quarter: 2013Q4

REPORT INFORMATION
  Report Type: Spontaneous
  Country: US (occurrence: None)
  Receive Date: 20131011
  Receipt Date: 20131011
  Transmission Date: 20140711
  Serious: Yes (Life-Threatening, Hospitalization, Disabling, Other)
  Sender: FDA-Public Use
  Company Number: None

PATIENT
  Age: 29 Year
  Sex: Male
  Weight: 83.92 kg

DRUGS (1)
  1. HEPARIN [Suspect]
     Indication: CATHETER MANAGEMENT
     Route: 042
     Dates: start: 20130807, end: 20130913

REACTIONS (29)
  - Nausea [None]
  - Rash [None]
  - Skin ulcer [None]
  - Product quality issue [None]
  - Product contamination [None]
  - Contusion [None]
  - Paraesthesia [None]
  - Pruritus [None]
  - Erythema [None]
  - Pain of skin [None]
  - Balance disorder [None]
  - Coordination abnormal [None]
  - Memory impairment [None]
  - Arthralgia [None]
  - Myalgia [None]
  - Arthritis [None]
  - Eye pain [None]
  - Sinus headache [None]
  - Sinus headache [None]
  - Back pain [None]
  - Tendon disorder [None]
  - Muscle disorder [None]
  - Oedema peripheral [None]
  - Oedema peripheral [None]
  - Lung infiltration [None]
  - Chest pain [None]
  - Penile contusion [None]
  - Pain [None]
  - Deformity [None]
